FAERS Safety Report 6140028-7 (Version None)
Quarter: 2009Q2

REPORT INFORMATION
  Report Type: 
  Country: None (occurrence: None)
  Receive Date: 20090401
  Receipt Date: 20090331
  Transmission Date: 20091009
  Serious: Yes (Other)
  Sender: FDA-Public Use
  Company Number: FR-WYE-G03142409

PATIENT
  Sex: Male
  Weight: 14 kg

DRUGS (1)
  1. ADVIL [Suspect]
     Indication: EAR PAIN
     Dosage: ONE SINGLE DOSE
     Route: 048
     Dates: start: 20090218, end: 20090218

REACTIONS (2)
  - EYELID OEDEMA [None]
  - URTICARIA [None]
